FAERS Safety Report 7533290-7 (Version None)
Quarter: 2011Q2

REPORT INFORMATION
  Report Type: 
  Country: None (occurrence: None)
  Receive Date: 20110608
  Receipt Date: 20040813
  Transmission Date: 20111010
  Serious: Yes (Hospitalization, Other)
  Sender: FDA-Public Use
  Company Number: PHFR2004GB03168

PATIENT
  Sex: Male

DRUGS (4)
  1. CITALOPRAM HYDROBROMIDE [Concomitant]
     Indication: DEPRESSION
     Dosage: 20 MG, QD
     Route: 048
     Dates: start: 20031201
  2. CLOZAPINE [Suspect]
     Indication: SCHIZOPHRENIA
     Dosage: 450 MG, QD
     Route: 048
     Dates: start: 20031101
  3. ALBUTEROL [Concomitant]
     Indication: ASTHMA
     Dosage: 8 OT, UNK
     Dates: start: 20031201
  4. OMEGA-3 MARINE TRIGLYCERIDES [Concomitant]
     Dosage: 2 G, QD
     Route: 048

REACTIONS (1)
  - ASTHMA [None]
